FAERS Safety Report 4934776-1 (Version None)
Quarter: 2006Q1

REPORT INFORMATION
  Report Type: 
  Country: None (occurrence: None)
  Receive Date: 20060307
  Receipt Date: 20060227
  Transmission Date: 20060701
  Serious: Yes (Hospitalization)
  Sender: FDA-Public Use
  Company Number: US-MERCK-0603USA00039

PATIENT
  Age: 51 Year
  Sex: Female

DRUGS (11)
  1. VIOXX [Suspect]
     Indication: FIBROMYALGIA
     Route: 048
     Dates: start: 19991015, end: 20040930
  2. VIOXX [Suspect]
     Indication: ARTHRALGIA
     Route: 048
     Dates: start: 19991015, end: 20040930
  3. TRAZODONE HYDROCHLORIDE [Concomitant]
     Indication: DEPRESSION
     Route: 065
  4. TRAZODONE HYDROCHLORIDE [Concomitant]
     Indication: INSOMNIA
     Route: 065
  5. LASIX [Concomitant]
     Indication: SWELLING
     Route: 065
     Dates: start: 19961001, end: 20050901
  6. PREVACID [Concomitant]
     Route: 065
  7. LOPRESSOR [Concomitant]
     Indication: ANGINA PECTORIS
     Route: 065
     Dates: start: 20010301
  8. PAXIL [Concomitant]
     Indication: DEPRESSION
     Route: 065
  9. FLEXERIL [Concomitant]
     Indication: FIBROMYALGIA
     Route: 065
     Dates: start: 19960101, end: 19991001
  10. AMBIEN [Concomitant]
     Route: 065
  11. PROZAC [Concomitant]
     Route: 065

REACTIONS (10)
  - BLOOD CHOLESTEROL INCREASED [None]
  - BLOOD TRIGLYCERIDES INCREASED [None]
  - BREAST LUMP REMOVAL [None]
  - CARDIAC VALVE DISEASE [None]
  - CHEST PAIN [None]
  - DIZZINESS [None]
  - DYSPNOEA [None]
  - HEART RATE ABNORMAL [None]
  - NEPHROLITHIASIS [None]
  - PULMONARY EMBOLISM [None]
